FAERS Safety Report 23839473 (Version 1)
Quarter: 2024Q2

REPORT INFORMATION
  Report Type: Spontaneous
  Country: AT (occurrence: AT)
  Receive Date: 20240510
  Receipt Date: 20240510
  Transmission Date: 20240715
  Serious: Yes (Other)
  Sender: FDA-Public Use
  Company Number: AT-BoehringerIngelheim-2024-BI-025788

PATIENT
  Age: 54 Year
  Sex: Female

DRUGS (1)
  1. TIOTROPIUM [Suspect]
     Active Substance: TIOTROPIUM
     Indication: Product used for unknown indication

REACTIONS (4)
  - Respiratory distress [Unknown]
  - Condition aggravated [Unknown]
  - Respiratory tract infection [Unknown]
  - Loss of personal independence in daily activities [Unknown]
